FAERS Safety Report 5514331-5 (Version None)
Quarter: 2007Q4

REPORT INFORMATION
  Report Type: 
  Country: None (occurrence: None)
  Receive Date: 20071113
  Receipt Date: 20070417
  Transmission Date: 20080405
  Serious: No
  Sender: FDA-Public Use
  Company Number: A0647638A

PATIENT
  Age: 81 Year
  Sex: Male

DRUGS (1)
  1. COREG [Suspect]
     Dosage: 12.5MG TWICE PER DAY
     Route: 048
     Dates: start: 20061228

REACTIONS (2)
  - HYPERSOMNIA [None]
  - SLEEP DISORDER [None]
